FAERS Safety Report 21970437 (Version 1)
Quarter: 2023Q1

REPORT INFORMATION
  Report Type: Report from Study
  Country: CA (occurrence: CA)
  Receive Date: 20230209
  Receipt Date: 20230209
  Transmission Date: 20230418
  Serious: Yes (Other)
  Sender: FDA-Public Use
  Company Number: CA-002147023-PHHY2017CA089448

PATIENT
  Age: 25 Year
  Sex: Male

DRUGS (2)
  1. DEFEROXAMINE [Suspect]
     Active Substance: DEFEROXAMINE MESYLATE
     Indication: Thalassaemia
     Dosage: UNK
     Route: 042
  2. DEFEROXAMINE [Suspect]
     Active Substance: DEFEROXAMINE MESYLATE
     Indication: Anaemia

REACTIONS (8)
  - Haematemesis [Unknown]
  - Full blood count decreased [Unknown]
  - Asthenia [Unknown]
  - Abdominal pain upper [Unknown]
  - Hepatic enzyme increased [Unknown]
  - Splenomegaly [Unknown]
  - Diarrhoea [Unknown]
  - Drug intolerance [Unknown]
